FAERS Safety Report 15207495 (Version 3)
Quarter: 2021Q4

REPORT INFORMATION
  Report Type: Spontaneous
  Country: US (occurrence: US)
  Receive Date: 20180727
  Receipt Date: 20211110
  Transmission Date: 20220303
  Serious: No
  Sender: FDA-Public Use
  Company Number: US-SA-2018SA200680

PATIENT
  Age: 67 Year
  Sex: Female

DRUGS (1)
  1. FABRAZYME [Suspect]
     Active Substance: AGALSIDASE BETA
     Dosage: 1 MG/KG, QOW
     Route: 041

REACTIONS (2)
  - Globotriaosylceramide increased [Unknown]
  - Urticaria [Unknown]

NARRATIVE: CASE EVENT DATE: 20210903
